FAERS Safety Report 5145942-7 (Version None)
Quarter: 2006Q4

REPORT INFORMATION
  Report Type: 
  Country: None (occurrence: None)
  Receive Date: 20061108
  Receipt Date: 20061017
  Transmission Date: 20070319
  Serious: Yes (Other)
  Sender: FDA-Public Use
  Company Number: PHBS2006JP16306

PATIENT
  Age: 87 Year
  Sex: Female

DRUGS (7)
  1. LOXOPROFEN SODIUM [Suspect]
     Dosage: 60 MG/DAY
     Route: 048
     Dates: end: 20061010
  2. NORVASC [Concomitant]
     Dosage: 5 MG/DAY
     Route: 048
  3. DIOVAN [Concomitant]
     Indication: HYPERTENSION
     Dosage: 80 MG/DAY
     Route: 048
  4. CYANOCOBALAMIN [Concomitant]
     Dosage: 1500 UG/DAY
     Route: 048
  5. ASPIRIN [Concomitant]
     Route: 065
  6. TEGRETOL [Suspect]
     Indication: TRIGEMINAL NEURALGIA
     Dosage: 50 MG, BID
     Route: 048
     Dates: start: 20060928, end: 20061010
  7. TEGRETOL [Suspect]
     Dosage: 100 MG, BID
     Route: 048
     Dates: start: 20060926, end: 20060927

REACTIONS (5)
  - CEREBRAL INFARCTION [None]
  - FAECES DISCOLOURED [None]
  - GAIT DISTURBANCE [None]
  - PYREXIA [None]
  - STOMACH DISCOMFORT [None]
